FAERS Safety Report 20429104 (Version 1)
Quarter: 2022Q1

REPORT INFORMATION
  Report Type: Spontaneous
  Country: US (occurrence: US)
  Receive Date: 20220204
  Receipt Date: 20220204
  Transmission Date: 20220423
  Serious: No
  Sender: FDA-Public Use
  Company Number: US-ALLERGAN-2201448US

PATIENT
  Age: 66 Year
  Sex: Male

DRUGS (1)
  1. VUITY [Suspect]
     Active Substance: PILOCARPINE HYDROCHLORIDE
     Indication: Product used for unknown indication
     Dosage: 2 GTT
     Route: 047
     Dates: start: 20220106, end: 20220106

REACTIONS (8)
  - Vertigo [Unknown]
  - Dizziness [Unknown]
  - Feeling abnormal [Unknown]
  - Mental impairment [Unknown]
  - Impaired driving ability [Unknown]
  - Bedridden [Unknown]
  - Visual impairment [Unknown]
  - Headache [Unknown]

NARRATIVE: CASE EVENT DATE: 20220106
